FAERS Safety Report 5833070-4 (Version None)
Quarter: 2008Q3

REPORT INFORMATION
  Report Type: 
  Country: None (occurrence: None)
  Receive Date: 20080805
  Receipt Date: 20080724
  Transmission Date: 20090109
  Serious: Yes (Hospitalization)
  Sender: FDA-Public Use
  Company Number: FR-ASTRAZENECA-2008CG01129

PATIENT
  Age: 777 Month
  Sex: Male

DRUGS (8)
  1. TENORDATE [Suspect]
     Indication: HYPERTENSION
     Dosage: 50+20 MG ONCE DAILY
     Route: 048
  2. NEXIUM [Suspect]
     Route: 048
     Dates: start: 20070802
  3. GEMZAR [Suspect]
     Indication: ADENOCARCINOMA PANCREAS
     Route: 042
     Dates: start: 20080311, end: 20080603
  4. ALLOPURINOL [Suspect]
     Indication: HYPERURICAEMIA
     Route: 048
  5. PRAVASTATIN [Suspect]
     Indication: DYSLIPIDAEMIA
     Route: 048
  6. FORLAX [Suspect]
     Route: 048
     Dates: start: 20070803
  7. HUMALOG [Suspect]
     Indication: TYPE 1 DIABETES MELLITUS
     Route: 058
  8. NOVOLOG MIX 70/30 [Suspect]
     Indication: TYPE 1 DIABETES MELLITUS
     Route: 058

REACTIONS (2)
  - PAIN [None]
  - VASCULITIS [None]
